FAERS Safety Report 8244898-8 (Version None)
Quarter: 2012Q1

REPORT INFORMATION
  Report Type: 
  Country: None (occurrence: None)
  Receive Date: 20120329
  Receipt Date: 20110819
  Transmission Date: 20120608
  Serious: No
  Sender: FDA-Public Use
  Company Number: US-MYLANLABS-2011S1017541

PATIENT
  Age: 55 Year
  Sex: Female
  Weight: 129.73 kg

DRUGS (8)
  1. METOPROLOL SUCCINATE [Concomitant]
     Indication: BLOOD PRESSURE
  2. ATIVAN [Concomitant]
  3. PLAVIX [Concomitant]
  4. ZOCOR [Concomitant]
  5. MIRALAX [Concomitant]
  6. FENTANYL-100 [Suspect]
     Indication: PAIN
     Dosage: Q72H
     Route: 062
     Dates: start: 20110601, end: 20110801
  7. ASPIRIN [Concomitant]
  8. ALTACE [Concomitant]

REACTIONS (4)
  - SLEEP TERROR [None]
  - DIZZINESS [None]
  - HALLUCINATION [None]
  - CONSTIPATION [None]
